FAERS Safety Report 8093883-8 (Version None)
Quarter: 2012Q1

REPORT INFORMATION
  Report Type: 
  Country: None (occurrence: None)
  Receive Date: 20120131
  Receipt Date: 20120120
  Transmission Date: 20120608
  Serious: Yes (Hospitalization)
  Sender: FDA-Public Use
  Company Number: US-BAYER-201037677NA

PATIENT
  Sex: Female
  Weight: 49.887 kg

DRUGS (11)
  1. LEXAPRO [Concomitant]
  2. NEURONTIN [Concomitant]
  3. PHYTONADIONE [Concomitant]
     Dosage: 5 MG, UNK
     Route: 048
  4. DEPO-MEDROL [Concomitant]
  5. PLAQUENIL [Concomitant]
  6. DROSPIRENONE AND ETHINYL ESTRADIOL [Suspect]
     Indication: ACNE
     Dosage: UNK
     Dates: start: 20010101, end: 20030101
  7. ULTRAM [Concomitant]
  8. YASMIN [Suspect]
     Indication: ACNE
     Dosage: UNK
     Dates: start: 20010101, end: 20030101
  9. YAZ [Suspect]
     Indication: ACNE
     Dosage: UNK
     Dates: start: 20010101, end: 20030101
  10. KEFLEX [Concomitant]
  11. DEMEROL [Concomitant]
     Dosage: UNK
     Route: 042
     Dates: start: 20080119, end: 20080119

REACTIONS (1)
  - DEEP VEIN THROMBOSIS [None]
